FAERS Safety Report 15805978 (Version 4)
Quarter: 2019Q2

REPORT INFORMATION
  Report Type: Report from Study
  Country: CA (occurrence: CA)
  Receive Date: 20190110
  Receipt Date: 20190425
  Transmission Date: 20190711
  Serious: Yes (Other)
  Sender: FDA-Public Use
  Company Number: CA-NALPROPION PHARMACEUTICALS INC.-2018-006404

PATIENT

DRUGS (8)
  1. CONTRAVE [Suspect]
     Active Substance: BUPROPION HYDROCHLORIDE\NALTREXONE HYDROCHLORIDE
     Dosage: ONE TABLET IN THE MORNING AND ONE TABLET IN THE EVENING. (1 DOSAGE FORMS,2 IN 1 D)
     Route: 048
     Dates: start: 20190107, end: 20190113
  2. FUCIDIN (FUSIDIC ACID) [Concomitant]
     Active Substance: FUSIDIC ACID
     Indication: SKIN INFECTION
     Dosage: AS NEEDED
     Route: 061
  3. LIPITOR [Concomitant]
     Active Substance: ATORVASTATIN CALCIUM
     Indication: BLOOD CHOLESTEROL ABNORMAL
     Dosage: AT NIGHT (10 MG, 1 IN 1 D)
     Route: 048
  4. CONTRAVE [Suspect]
     Active Substance: BUPROPION HYDROCHLORIDE\NALTREXONE HYDROCHLORIDE
     Dosage: 4 DOSAGE FORMS (2 DOSAGE FORMS,2 IN 1 D)
     Route: 048
     Dates: start: 20190121
  5. ADVAIR HFA [Concomitant]
     Active Substance: FLUTICASONE PROPIONATE\SALMETEROL XINAFOATE
     Indication: RESPIRATORY DISORDER
     Dosage: AS NEEDED
     Route: 048
  6. LAMISIL [Concomitant]
     Active Substance: TERBINAFINE HYDROCHLORIDE
     Indication: SKIN INFECTION
     Dosage: AS NEEDED
     Route: 061
  7. CONTRAVE [Suspect]
     Active Substance: BUPROPION HYDROCHLORIDE\NALTREXONE HYDROCHLORIDE
     Indication: WEIGHT CONTROL
     Dosage: ONE TABLET IN THE MORNING (1 DOSAGE FORMS,1 IN 1 D)
     Route: 048
     Dates: start: 20181223, end: 20190106
  8. CONTRAVE [Suspect]
     Active Substance: BUPROPION HYDROCHLORIDE\NALTREXONE HYDROCHLORIDE
     Dosage: TWO TABLET IN THE MORNING, 1 TABLET IN EVENING (2 IN 1 D)
     Route: 048
     Dates: start: 20190114, end: 20190120

REACTIONS (17)
  - Hyporeflexia [Recovering/Resolving]
  - Insomnia [Not Recovered/Not Resolved]
  - Ejaculation delayed [Recovered/Resolved]
  - Anxiety [Recovered/Resolved]
  - Fatigue [Not Recovered/Not Resolved]
  - Feeling abnormal [Not Recovered/Not Resolved]
  - Dry mouth [Recovering/Resolving]
  - Aggression [Recovered/Resolved]
  - Suicidal ideation [Recovered/Resolved]
  - Somnolence [Recovering/Resolving]
  - Eye disorder [Recovering/Resolving]
  - Limb discomfort [Recovering/Resolving]
  - Sexual dysfunction [Recovered/Resolved]
  - Ocular discomfort [Recovering/Resolving]
  - Dizziness [Recovering/Resolving]
  - Drug titration error [Unknown]
  - Nausea [Recovering/Resolving]

NARRATIVE: CASE EVENT DATE: 201812
